FAERS Safety Report 9310026 (Version 3)
Quarter: 2013Q3

REPORT INFORMATION
  Report Type: Spontaneous
  Country: IT (occurrence: IT)
  Receive Date: 20130527
  Receipt Date: 20130712
  Transmission Date: 20140515
  Serious: Yes (Hospitalization, Other)
  Sender: FDA-Public Use
  Company Number: IT-MERCK-1305ITA013394

PATIENT
  Age: 52 Year
  Sex: Female

DRUGS (1)
  1. VELMETIA [Suspect]
     Indication: DIABETES MELLITUS
     Dosage: UNK
     Route: 048

REACTIONS (4)
  - Pancreatic injury [Recovered/Resolved]
  - Pancreatitis acute [Recovered/Resolved]
  - Therapeutic procedure [Unknown]
  - Therapeutic procedure [Unknown]
